FAERS Safety Report 7280639-9 (Version None)
Quarter: 2011Q1

REPORT INFORMATION
  Report Type: 
  Country: None (occurrence: None)
  Receive Date: 20110208
  Receipt Date: 20110204
  Transmission Date: 20110831
  Serious: Yes (Hospitalization)
  Sender: FDA-Public Use
  Company Number: A0777972A

PATIENT
  Age: 53 Year
  Sex: Male
  Weight: 102.3 kg

DRUGS (3)
  1. METFORMIN [Concomitant]
     Dates: start: 20050101
  2. AVANDIA [Suspect]
     Dosage: 4MG TWICE PER DAY
     Route: 048
     Dates: start: 20060701, end: 20070301
  3. AVANDAMET [Suspect]
     Route: 048
     Dates: start: 20070301, end: 20071201

REACTIONS (2)
  - MYOCARDIAL INFARCTION [None]
  - CARDIAC FAILURE CONGESTIVE [None]
